FAERS Safety Report 5019347-3 (Version None)
Quarter: 2006Q2

REPORT INFORMATION
  Report Type: 
  Country: None (occurrence: None)
  Receive Date: 20060531
  Receipt Date: 20060519
  Transmission Date: 20061013
  Serious: Yes (Hospitalization)
  Sender: FDA-Public Use
  Company Number: 200612143GDS

PATIENT
  Age: 56 Year
  Sex: Male

DRUGS (2)
  1. GLUCOBAY [Suspect]
     Indication: DIABETES MELLITUS
     Dosage: 25 MG, QD, ORAL
     Route: 048
     Dates: start: 20051230, end: 20060115
  2. BEAN PODS NATURAL EXTRACTS [Concomitant]

REACTIONS (4)
  - ABDOMINAL PAIN UPPER [None]
  - DUODENAL ULCER PERFORATION [None]
  - DYSPEPSIA [None]
  - PERITONITIS [None]
